FAERS Safety Report 24918095 (Version 1)
Quarter: 2025Q1

REPORT INFORMATION
  Report Type: Spontaneous
  Country: US (occurrence: US)
  Receive Date: 20250203
  Receipt Date: 20250203
  Transmission Date: 20250409
  Serious: No
  Sender: INCYTE
  Company Number: US-INCYTE CORPORATION-2025IN000441

PATIENT

DRUGS (2)
  1. OPZELURA [Suspect]
     Active Substance: RUXOLITINIB PHOSPHATE
     Indication: Dermatitis atopic
     Route: 065
     Dates: start: 2024
  2. TACROLIMUS [Suspect]
     Active Substance: TACROLIMUS
     Indication: Dermatitis atopic
     Route: 065
     Dates: start: 2024

REACTIONS (2)
  - Dermatitis atopic [Unknown]
  - Drug ineffective [Unknown]
